FAERS Safety Report 14781620 (Version 1)
Quarter: 2018Q2

REPORT INFORMATION
  Report Type: Spontaneous
  Country: DE (occurrence: DE)
  Receive Date: 20180420
  Receipt Date: 20180420
  Transmission Date: 20180711
  Serious: Yes (Other)
  Sender: FDA-Public Use
  Company Number: DE-CIPLA LTD.-2018DE15918

PATIENT

DRUGS (6)
  1. AVASTIN [Suspect]
     Active Substance: BEVACIZUMAB
     Indication: BRONCHIAL CARCINOMA
     Dosage: 7.5 MG/KG, THRICE WEEKLY
     Route: 042
     Dates: start: 20140321
  2. CARBOPLATIN. [Suspect]
     Active Substance: CARBOPLATIN
     Indication: BRONCHIAL CARCINOMA
     Dosage: 520 MG, THRICE WEEKLY, LAST DOSE WAS ON 12/JUN/2014
     Route: 042
     Dates: start: 20140512
  3. PACLITAXEL. [Suspect]
     Active Substance: PACLITAXEL
     Indication: BRONCHIAL CARCINOMA
     Dosage: 350 MG, THRICE WEEKLY, LAST DOSE WAS ON 12/JUN/2014
     Route: 042
     Dates: start: 20140512
  4. AVASTIN [Suspect]
     Active Substance: BEVACIZUMAB
     Dosage: 653 MG, THRICE WEEKLY, LAST DOSE WAS ON 12/JUN/2014
     Route: 042
     Dates: start: 20140414
  5. BELOC ZOK [Concomitant]
     Active Substance: METOPROLOL SUCCINATE
     Indication: HYPERTENSION
     Dosage: 1-0-0.5 DOSAGE FORM.
     Route: 048
     Dates: start: 20140318
  6. AVASTIN [Suspect]
     Active Substance: BEVACIZUMAB
     Dosage: 653 MG, THRICE WEEKLY
     Route: 042
     Dates: start: 20140724, end: 20140724

REACTIONS (5)
  - Fatigue [Recovered/Resolved]
  - Neutropenia [Recovered/Resolved]
  - Pulmonary embolism [Not Recovered/Not Resolved]
  - Hypertension [Recovered/Resolved]
  - Pneumonia [Recovered/Resolved]

NARRATIVE: CASE EVENT DATE: 20140414
